FAERS Safety Report 6130949-3 (Version None)
Quarter: 2009Q1

REPORT INFORMATION
  Report Type: 
  Country: None (occurrence: None)
  Receive Date: 20090323
  Receipt Date: 20090316
  Transmission Date: 20090719
  Serious: No
  Sender: FDA-Public Use
  Company Number: TUK2009A00050

PATIENT
  Sex: Female

DRUGS (1)
  1. ACTOS [Suspect]

REACTIONS (1)
  - BONE DENSITY DECREASED [None]
